FAERS Safety Report 6751187 (Version 6)
Quarter: 2019Q1

REPORT INFORMATION
  Report Type: Spontaneous
  Country: JP (occurrence: JP)
  Receive Date: 20080909
  Receipt Date: 20190321
  Transmission Date: 20190418
  Serious: Yes (Death, Hospitalization, Disabling, Other)
  Sender: FDA-Public Use
  Company Number: PHHY2008JP17592

PATIENT
  Age: 74 Year
  Sex: Female
  Weight: 64 kg

DRUGS (1)
  1. FEMARA [Suspect]
     Active Substance: LETROZOLE
     Indication: BREAST CANCER
     Dosage: 2.5 MG, QD
     Route: 048
     Dates: start: 20061229, end: 20080807

REACTIONS (11)
  - Cardiac failure [Fatal]
  - Ejection fraction decreased [Fatal]
  - Hyperlipidaemia [Recovering/Resolving]
  - Cardiothoracic ratio increased [Fatal]
  - Cardiac valve disease [Unknown]
  - Aortic valve incompetence [Fatal]
  - Ventricular extrasystoles [Fatal]
  - Blood pressure increased [Recovering/Resolving]
  - Supraventricular extrasystoles [Fatal]
  - Left ventricular hypertrophy [Fatal]
  - Cardiac murmur [Recovering/Resolving]

NARRATIVE: CASE EVENT DATE: 2006
